FAERS Safety Report 5447750-6 (Version None)
Quarter: 2007Q3

REPORT INFORMATION
  Report Type: 
  Country: None (occurrence: None)
  Receive Date: 20070910
  Receipt Date: 20070110
  Transmission Date: 20080115
  Serious: No
  Sender: FDA-Public Use
  Company Number: US-BRISTOL-MYERS SQUIBB COMPANY-13638515

PATIENT
  Age: 54 Year
  Sex: Female

DRUGS (3)
  1. MUCOMYST [Suspect]
  2. DUONEB [Suspect]
  3. ALBUTEROL [Suspect]

REACTIONS (1)
  - HEART RATE INCREASED [None]
